FAERS Safety Report 9338496 (Version 1)
Quarter: 2013Q2

REPORT INFORMATION
  Report Type: Spontaneous
  Country: US (occurrence: US)
  Receive Date: 20130610
  Receipt Date: 20130610
  Transmission Date: 20140414
  Serious: Yes (Other)
  Sender: FDA-Public Use
  Company Number: US-JNJFOC-20130600130

PATIENT
  Age: 66 Year
  Sex: Male
  Weight: 86.18 kg

DRUGS (7)
  1. INVOKANA [Suspect]
     Indication: TYPE 1 DIABETES MELLITUS
     Route: 048
     Dates: start: 20130528, end: 20130530
  2. INVOKANA [Suspect]
     Indication: TYPE 1 DIABETES MELLITUS
     Route: 048
     Dates: start: 20130523, end: 20130527
  3. FUROSEMIDE [Concomitant]
     Indication: OEDEMA
     Route: 048
  4. HUMALOG [Concomitant]
     Indication: TYPE 1 DIABETES MELLITUS
  5. HUMALOG [Concomitant]
     Indication: TYPE 1 DIABETES MELLITUS
     Dates: start: 20130523
  6. LANTUS [Concomitant]
     Indication: TYPE 1 DIABETES MELLITUS
  7. LANTUS [Concomitant]
     Indication: TYPE 1 DIABETES MELLITUS
     Dates: start: 20130523, end: 20130530

REACTIONS (3)
  - Blood glucose increased [Recovered/Resolved]
  - Drug prescribing error [Recovered/Resolved]
  - Drug ineffective [Recovered/Resolved]
